FAERS Safety Report 22524149 (Version 1)
Quarter: 2023Q2

REPORT INFORMATION
  Report Type: Spontaneous
  Country: US (occurrence: US)
  Receive Date: 20230606
  Receipt Date: 20230606
  Transmission Date: 20230721
  Serious: Yes (Hospitalization)
  Sender: FDA-Public Use
  Company Number: US-MSNLABS-2023MSNSPO00866

PATIENT

DRUGS (3)
  1. CAPECITABINE [Suspect]
     Active Substance: CAPECITABINE
     Indication: Pancreatic carcinoma
     Dosage: 02 TABLETS IN THE MORNING FOR 14 DAYS UNTIL 28 DAYS CYCLE
     Route: 048
     Dates: start: 20230309, end: 20230426
  2. CAPECITABINE [Suspect]
     Active Substance: CAPECITABINE
     Dosage: 02 TABLETS EVERY EVENING FOR 14 DAYS UNTIL 28 DAYS CYCLE
     Route: 048
     Dates: start: 20230309, end: 20230426
  3. PANTOPRAZOLE [Concomitant]
     Active Substance: PANTOPRAZOLE
     Indication: Product used for unknown indication
     Route: 065

REACTIONS (3)
  - Chest pain [Recovered/Resolved]
  - Dyspnoea [Recovered/Resolved]
  - Hypotension [Recovered/Resolved]

NARRATIVE: CASE EVENT DATE: 20230421
